FAERS Safety Report 4374566-4 (Version None)
Quarter: 2004Q2

REPORT INFORMATION
  Report Type: 
  Country: None (occurrence: None)
  Receive Date: 20040602
  Receipt Date: 20040217
  Transmission Date: 20050107
  Serious: No
  Sender: FDA-Public Use
  Company Number: 200412902BWH

PATIENT
  Age: 63 Year
  Sex: Male
  Weight: 121.564 kg

DRUGS (8)
  1. LEVITRA [Suspect]
     Dosage: 20 MG, TOTAL DAILY, ORAL; SEE IMAGE
     Route: 048
  2. NORVASC [Concomitant]
  3. LOZOL [Concomitant]
  4. NIASPAN [Concomitant]
  5. ACCUPRIL [Concomitant]
  6. GLUCOTROL [Concomitant]
  7. FLOMAX [Concomitant]
  8. CIALIS ^GLAXOSMITHKLINE^ [Concomitant]

REACTIONS (2)
  - CYANOPSIA [None]
  - ERECTILE DYSFUNCTION [None]
